FAERS Safety Report 5575913-8 (Version None)
Quarter: 2007Q4

REPORT INFORMATION
  Report Type: 
  Country: None (occurrence: None)
  Receive Date: 20071221
  Receipt Date: 20071207
  Transmission Date: 20080405
  Serious: Yes (Other)
  Sender: FDA-Public Use
  Company Number: 02100-JPN-07-0764

PATIENT
  Age: 60 Year
  Sex: Female

DRUGS (8)
  1. CILOSTAZOL [Suspect]
     Indication: ARTERIOSCLEROSIS OBLITERANS
     Route: 048
     Dates: start: 20071101, end: 20071101
  2. SARPOGRELATE HYDROCHLORIDE [Concomitant]
  3. TOCOPHERYL NICOTINATE [Concomitant]
  4. AMLODIPINE BESYLATE [Concomitant]
  5. TEMOCAPRIL HYDROCHLORIDE [Concomitant]
  6. SEVELAMER HYDROCHLORIDE [Concomitant]
  7. NICORANDIL [Concomitant]
  8. CARVEDILOL [Concomitant]

REACTIONS (1)
  - CARDIAC FAILURE [None]
